FAERS Safety Report 15629790 (Version 2)
Quarter: 2018Q4

REPORT INFORMATION
  Report Type: Spontaneous
  Country: BG (occurrence: BG)
  Receive Date: 20181117
  Receipt Date: 20181201
  Transmission Date: 20190205
  Serious: Yes (Death, Hospitalization, Other)
  Sender: FDA-Public Use
  Company Number: BG-AMGEN-BGRSP2018164045

PATIENT
  Sex: Female

DRUGS (12)
  1. AMINOVEN [Concomitant]
     Active Substance: AMINO ACIDS
     Dosage: UNK
  2. KYPROLIS [Suspect]
     Active Substance: CARFILZOMIB
     Indication: PLASMA CELL MYELOMA
     Dosage: 53 MG, ON DAY 1, 2, 7, 8, 15 AND 16
     Route: 065
  3. ACTRAPID [Concomitant]
     Active Substance: INSULIN HUMAN
     Dosage: UNK
  4. DEXAMETHASONE. [Concomitant]
     Active Substance: DEXAMETHASONE
     Indication: PLASMA CELL MYELOMA
     Dosage: 40 MG, QD DAY 1, 8, 15
     Route: 065
  5. RANITIDINE. [Concomitant]
     Active Substance: RANITIDINE
     Dosage: UNK
  6. AMOXICLAV [Concomitant]
     Active Substance: AMOXICILLIN\CLAVULANATE POTASSIUM
     Dosage: UNK
  7. CALCIUM GLUCONICUM [Concomitant]
     Dosage: UNK
  8. DEXAMETHASONE. [Concomitant]
     Active Substance: DEXAMETHASONE
     Dosage: 20 MG, DAY 1, 8 AND 15
     Route: 065
     Dates: start: 201808
  9. CAPRINOL [Concomitant]
     Dosage: UNK
  10. CEFTRIAXON [Concomitant]
     Active Substance: CEFTRIAXONE
     Dosage: UNK
  11. DICYNONE [Concomitant]
     Active Substance: ETHAMSYLATE
     Dosage: UNK
  12. URBASON [Concomitant]
     Active Substance: METHYLPREDNISOLONE
     Dosage: UNK

REACTIONS (3)
  - Psychomotor hyperactivity [Recovering/Resolving]
  - Haemorrhage [Fatal]
  - Disorientation [Recovering/Resolving]

NARRATIVE: CASE EVENT DATE: 20180817
